FAERS Safety Report 25435072 (Version 1)
Quarter: 2025Q2

REPORT INFORMATION
  Report Type: Spontaneous
  Country: TW (occurrence: TW)
  Receive Date: 20250613
  Receipt Date: 20250613
  Transmission Date: 20250716
  Serious: Yes (Other)
  Sender: REGENERON
  Company Number: TW-REGENERON PHARMACEUTICALS, INC.-2025-094681

PATIENT
  Age: 66 Year
  Sex: Male

DRUGS (2)
  1. LIBTAYO [Suspect]
     Active Substance: CEMIPLIMAB-RWLC
     Indication: Lung adenocarcinoma
  2. LIBTAYO [Suspect]
     Active Substance: CEMIPLIMAB-RWLC
     Indication: Metastases to central nervous system

REACTIONS (2)
  - Malignant neoplasm oligoprogression [Unknown]
  - Bone cancer [Unknown]
